FAERS Safety Report 21860472 (Version 1)
Quarter: 2023Q1

REPORT INFORMATION
  Report Type: Spontaneous
  Country: US (occurrence: US)
  Receive Date: 20230113
  Receipt Date: 20230113
  Transmission Date: 20230417
  Serious: Yes (Other)
  Sender: FDA-Public Use
  Company Number: US-MYLANLABS-2022M1141816

PATIENT
  Age: 62 Year
  Sex: Male

DRUGS (18)
  1. PACLITAXEL [Suspect]
     Active Substance: PACLITAXEL
     Indication: Non-small cell lung cancer
     Dosage: UNK UNK, QW (CYCLIC)
     Route: 065
  2. CARBOPLATIN [Suspect]
     Active Substance: CARBOPLATIN
     Indication: Non-small cell lung cancer
     Dosage: UNK, QW (CYCLIC)
     Route: 065
  3. PREDNISONE [Suspect]
     Active Substance: PREDNISONE
     Indication: Evidence based treatment
     Dosage: 25 MILLIGRAM
     Route: 065
  4. PREDNISONE [Suspect]
     Active Substance: PREDNISONE
     Indication: Radiation pneumonitis
     Dosage: 5 MILLIGRAM
     Route: 065
  5. PREDNISONE [Suspect]
     Active Substance: PREDNISONE
     Dosage: 20 MILLIGRAM
     Route: 065
  6. TESTOSTERONE PROPIONATE [Concomitant]
     Active Substance: TESTOSTERONE PROPIONATE
     Indication: Radiation pneumonitis
     Dosage: 250 MILLIGRAM, QD, RECEIVED FROM WEEK 1-8 AND..
     Route: 065
  7. MESTEROLONE [Concomitant]
     Active Substance: MESTEROLONE
     Indication: Radiation pneumonitis
     Dosage: 50 MILLIGRAM, BID; RECEIVED FROM WEEK 1-8 AND...
     Route: 065
  8. STANOZOLOL [Concomitant]
     Active Substance: STANOZOLOL
     Indication: Radiation pneumonitis
     Dosage: 10 MILLIGRAM, TID; THREE TIMES DAILY, RECEIVED FROM WEEK 1-8 AND..
     Route: 065
  9. ANASTROZOLE [Concomitant]
     Active Substance: ANASTROZOLE
     Indication: Radiation pneumonitis
     Dosage: 0.5 MILLIGRAM, QD; RECEIVED FROM WEEK 1-16
     Route: 065
  10. CHLORODEHYDROMETHYLTESTOSTERONE [Concomitant]
     Active Substance: CHLORODEHYDROMETHYLTESTOSTERONE
     Indication: Radiation pneumonitis
     Dosage: 50 MILLIGRAM, BID, RECEIVED FROM WEEK 1-8
     Route: 065
  11. SOMATROPIN [Concomitant]
     Active Substance: SOMATROPIN
     Indication: Radiation pneumonitis
     Dosage: 0.08 MILLIGRAM,0.5 WEEKLY; RECEIVED FROM WEEK 1-20
     Route: 065
  12. TESTOSTERONE ISOCAPROATE [Concomitant]
     Active Substance: TESTOSTERONE ISOCAPROATE
     Indication: Radiation pneumonitis
     Dosage: 150 MILLIGRAM; 0.5 WEEKLY, RECEIVED FROM WEEK 8-16
     Route: 065
  13. NANDROLONE [Concomitant]
     Active Substance: NANDROLONE
     Indication: Radiation pneumonitis
     Dosage: 400 MILLIGRAM, 0.5 WEEKLY, RECEIVED FROM WEEK 8-16
     Route: 065
  14. METHANDROSTENOLONE [Concomitant]
     Active Substance: METHANDROSTENOLONE
     Indication: Radiation pneumonitis
     Dosage: 50 MILLIGRAM, BID; RECEIVED FROM WEEK 8-16
     Route: 065
  15. DROMOSTANOLONE PROPIONATE [Concomitant]
     Active Substance: DROMOSTANOLONE PROPIONATE
     Indication: Radiation pneumonitis
     Dosage: 100 MILLIGRAM, BID, RECEIVED FROM WEEK 16-20
     Route: 065
  16. OXANDROLONE [Concomitant]
     Active Substance: OXANDROLONE
     Indication: Radiation pneumonitis
     Dosage: 50 MILLIGRAM, BID, RECEIVED FROM WEEK 16-20
     Route: 065
  17. FLUOXYMESTERONE [Concomitant]
     Active Substance: FLUOXYMESTERONE
     Indication: Radiation pneumonitis
     Dosage: 10 MILLIGRAM, BID, RECEIVED FROM WEEK 16-20
     Route: 065
  18. AZITHROMYCIN [Concomitant]
     Active Substance: AZITHROMYCIN
     Indication: Evidence based treatment
     Dosage: UNK
     Route: 065

REACTIONS (2)
  - Radiation pneumonitis [Recovered/Resolved]
  - Hepatic steatosis [Recovered/Resolved]
